FAERS Safety Report 23290139 (Version 1)
Quarter: 2023Q4

REPORT INFORMATION
  Report Type: Report from Study
  Country: US (occurrence: US)
  Receive Date: 20231213
  Receipt Date: 20231213
  Transmission Date: 20240110
  Serious: Yes (Other)
  Sender: FDA-Public Use
  Company Number: US-JAZZ-2022-US-028000

PATIENT
  Age: 42 Year
  Sex: Female

DRUGS (7)
  1. XYREM [Suspect]
     Active Substance: SODIUM OXYBATE
     Indication: Narcolepsy
     Dosage: BID
     Route: 048
     Dates: start: 2011
  2. NUVIGIL [Concomitant]
     Active Substance: ARMODAFINIL
     Dosage: 0000
     Dates: start: 20111104
  3. ARMODAFINIL [Concomitant]
     Active Substance: ARMODAFINIL
     Dosage: 1 TAB DAILY
     Route: 048
  4. ESOMEPRAZOLE [Concomitant]
     Active Substance: ESOMEPRAZOLE
     Dosage: UNK
  5. HYDROCHLOROTHIAZIDE [Concomitant]
     Active Substance: HYDROCHLOROTHIAZIDE
     Dosage: UNK
  6. VITAMINS NOS [Concomitant]
     Active Substance: VITAMINS
     Dosage: UNK
  7. WAKIX [Concomitant]
     Active Substance: PITOLISANT HYDROCHLORIDE
     Dosage: UNK

REACTIONS (8)
  - Surgery [Unknown]
  - Obesity [Recovering/Resolving]
  - Dizziness postural [Unknown]
  - Dyspnoea exertional [Unknown]
  - Rhinitis [Unknown]
  - Hypertension [Unknown]
  - Obstructive sleep apnoea syndrome [Unknown]
  - COVID-19 [Unknown]

NARRATIVE: CASE EVENT DATE: 20220705
